FAERS Safety Report 15030147 (Version 1)
Quarter: 2018Q2

REPORT INFORMATION
  Report Type: Spontaneous
  Country: JP (occurrence: JP)
  Receive Date: 20180619
  Receipt Date: 20180619
  Transmission Date: 20180711
  Serious: Yes (Hospitalization, Other)
  Sender: FDA-Public Use
  Company Number: JP-NOVOPROD-605169

PATIENT
  Age: 50 Year
  Sex: Male

DRUGS (2)
  1. TRESIBA CHU [Suspect]
     Active Substance: INSULIN DEGLUDEC
     Indication: TYPE 1 DIABETES MELLITUS
     Dosage: 240 IU
     Route: 058
  2. NOVORAPID [Suspect]
     Active Substance: INSULIN ASPART
     Indication: TYPE 1 DIABETES MELLITUS
     Dosage: 240 IU
     Route: 058

REACTIONS (3)
  - Intentional overdose [Unknown]
  - Hypoglycaemia [Recovered/Resolved]
  - Suicide attempt [Unknown]
